FAERS Safety Report 4905673-2 (Version None)
Quarter: 2006Q1

REPORT INFORMATION
  Report Type: 
  Country: None (occurrence: None)
  Receive Date: 20060203
  Receipt Date: 20060125
  Transmission Date: 20060701
  Serious: Yes (Other)
  Sender: FDA-Public Use
  Company Number: 2006013770

PATIENT

DRUGS (5)
  1. AROMASIN [Suspect]
     Indication: BREAST CANCER FEMALE
     Dosage: 25 MG (25  MG, IN 1 D), ORAL
     Route: 048
     Dates: start: 20050803, end: 20050914
  2. DIOVAN HCT [Concomitant]
  3. ACTONEL [Concomitant]
  4. THYROID TAB [Concomitant]
  5. FOLIC ACID [Concomitant]

REACTIONS (3)
  - BURSITIS [None]
  - HIGH DENSITY LIPOPROTEIN INCREASED [None]
  - VITAMIN B12 INCREASED [None]
